FAERS Safety Report 8241914-4 (Version None)
Quarter: 2012Q1

REPORT INFORMATION
  Report Type: 
  Country: None (occurrence: None)
  Receive Date: 20120329
  Receipt Date: 20120321
  Transmission Date: 20120608
  Serious: Yes (Hospitalization)
  Sender: FDA-Public Use
  Company Number: NL-AMGEN-NLDSP2012019317

PATIENT
  Age: 55 Year
  Sex: Male
  Weight: 81 kg

DRUGS (54)
  1. PREDNISONE TAB [Suspect]
     Indication: B-CELL LYMPHOMA
     Dosage: 500 MG, UNK
     Route: 048
     Dates: start: 20120221, end: 20120225
  2. VINCRISTINE [Suspect]
     Dosage: 2 MG, UNK
     Route: 042
     Dates: start: 20120306, end: 20120306
  3. OMEPRAZOLE [Concomitant]
     Indication: ABDOMINAL PAIN UPPER
     Dosage: 40 MG, UNK
     Route: 048
     Dates: start: 20120102, end: 20120123
  4. CLEMASTINE FUMARATE [Concomitant]
     Dosage: 2 MG, UNK
     Route: 048
     Dates: start: 20120228, end: 20120228
  5. IMODIUM [Concomitant]
     Dosage: 2 MG, UNK
     Route: 048
     Dates: start: 20120229
  6. RITUXIMAB [Suspect]
     Dosage: 700 MG, UNK
     Route: 042
     Dates: start: 20120306, end: 20120306
  7. DOXORUBICIN HCL [Suspect]
     Dosage: 100 MG, UNK
     Route: 042
     Dates: start: 20120306, end: 20120306
  8. PAMOL [Concomitant]
     Dosage: 1000 MG, UNK
     Route: 048
     Dates: start: 20120228, end: 20120228
  9. PAMOL [Concomitant]
     Dosage: 1000 MG, UNK
     Route: 048
     Dates: start: 20120306, end: 20120306
  10. MORPHINE SULFATE [Concomitant]
     Indication: PAIN
     Dosage: 60 MG, UNK
     Route: 048
     Dates: start: 20120209, end: 20120220
  11. LANSOPRAZOLE [Concomitant]
     Indication: ABDOMINAL PAIN UPPER
     Dosage: 30 MG, UNK
     Route: 048
     Dates: start: 20120125, end: 20120208
  12. MOXALOLE [Concomitant]
     Indication: CONSTIPATION
     Dosage: 2 DF, UNK
     Route: 048
     Dates: start: 20120118, end: 20120120
  13. FLUCONAZOLE [Concomitant]
     Indication: CONSTIPATION
     Dosage: 600 MG, UNK
     Route: 048
     Dates: start: 20120122, end: 20120123
  14. MAGNESIUM HYDROXIDE TAB [Concomitant]
     Indication: CONSTIPATION
     Dosage: 1000 MG, UNK
     Route: 048
     Dates: start: 20120105, end: 20120206
  15. ONDANSETRON [Concomitant]
     Indication: NAUSEA
     Dosage: 2 MG, UNK
     Route: 042
     Dates: start: 20120109, end: 20120130
  16. ALLOPURINOL [Concomitant]
     Dosage: 300 MG, UNK
     Route: 048
     Dates: start: 20120306
  17. METADON                            /00068902/ [Concomitant]
     Dosage: 10 MG, UNK
     Route: 048
     Dates: start: 20120201, end: 20120209
  18. NEUPOGEN [Suspect]
     Indication: B-CELL LYMPHOMA
     Dosage: 6 MG, UNK
     Route: 058
     Dates: start: 20120224, end: 20120224
  19. METADON                            /00068902/ [Concomitant]
     Indication: PAIN
     Dosage: 10 MG, UNK
     Route: 048
     Dates: start: 20120120, end: 20120201
  20. CYCLOPHOSPHAMIDE [Suspect]
     Indication: B-CELL LYMPHOMA
     Dosage: 1400 MG, UNK
     Route: 042
     Dates: start: 20120221, end: 20120221
  21. PRIMPERAN TAB [Concomitant]
     Indication: NAUSEA
     Dosage: 10 MG, PRN
     Route: 048
     Dates: start: 20120109, end: 20120130
  22. PAMOL [Concomitant]
     Indication: PAIN
     Dosage: 1000 MG, UNK
     Route: 048
     Dates: start: 20120202, end: 20120202
  23. CLEMASTINE FUMARATE [Concomitant]
     Dosage: 2 MG, UNK
     Route: 048
     Dates: start: 20120202, end: 20120202
  24. CLEMASTINE FUMARATE [Concomitant]
     Dosage: 2 MG, UNK
     Route: 048
     Dates: start: 20120306, end: 20120306
  25. NEUPOGEN [Suspect]
     Dosage: 6 MG, UNK
     Route: 058
     Dates: start: 20120309, end: 20120309
  26. RITUXIMAB [Suspect]
     Indication: B-CELL LYMPHOMA
     Dosage: 700 MG, UNK
     Route: 042
     Dates: start: 20120221, end: 20120221
  27. CYCLOPHOSPHAMIDE [Suspect]
     Dosage: 1400 MG, UNK
     Route: 042
     Dates: start: 20120306, end: 20120306
  28. IMOCLONE [Concomitant]
     Indication: INSOMNIA
     Dosage: 7.5 MG, PRN
     Route: 048
     Dates: start: 20120122, end: 20120128
  29. PAMOL [Concomitant]
     Dosage: 1000 MG, UNK
     Route: 048
     Dates: start: 20120209, end: 20120209
  30. SULFAMETHOXAZOLE + TRIMETHOPRIM [Concomitant]
     Indication: INFECTION
     Dosage: 480 MG, UNK
     Route: 048
     Dates: start: 20120202, end: 20120228
  31. ACYCLOVIR [Concomitant]
     Indication: INFECTION
     Dosage: 800 MG, UNK
     Route: 048
     Dates: start: 20120202, end: 20120228
  32. LACTULOSE [Concomitant]
     Indication: CONSTIPATION
     Dosage: 60 MG, UNK
     Route: 048
     Dates: start: 20120209, end: 20120214
  33. FLUCONAZOLE [Concomitant]
     Dosage: 600 MG, UNK
     Route: 048
     Dates: start: 20120123, end: 20120206
  34. IMODIUM [Concomitant]
     Indication: DIARRHOEA
     Dosage: 600 MG, UNK
     Route: 048
     Dates: start: 20120122, end: 20120123
  35. IMODIUM [Concomitant]
     Indication: CONSTIPATION
     Dosage: 600 MG, UNK
     Route: 048
     Dates: start: 20120123, end: 20120206
  36. OXAZEPAM [Concomitant]
     Indication: DIARRHOEA
     Dosage: 15 MG, UNK
     Route: 048
     Dates: start: 20120114
  37. IBUPROFEN [Concomitant]
     Indication: PAIN
     Dosage: 400 MG, PRN
     Route: 048
     Dates: start: 20120113, end: 20120120
  38. ALLOPURINOL [Concomitant]
     Dosage: 300 MG, UNK
     Route: 048
     Dates: start: 20120127, end: 20120228
  39. CLEMASTINE FUMARATE [Concomitant]
     Dosage: 2 MG, UNK
     Route: 048
     Dates: start: 20120209, end: 20120209
  40. CLEMASTINE FUMARATE [Concomitant]
     Dosage: 2 MG, UNK
     Route: 048
     Dates: start: 20120221, end: 20120221
  41. ELECTROLYTES NOS W/MACROGOL 3350 [Concomitant]
     Indication: CONSTIPATION
     Dosage: 2 DF, UNK
     Route: 048
     Dates: start: 20120209, end: 20120302
  42. FLUCONAZOLE [Concomitant]
     Dosage: 200 MG, UNK
     Route: 048
     Dates: start: 20120220, end: 20120302
  43. RITUXIMAB [Suspect]
     Dosage: 700 MG, UNK
     Route: 042
     Dates: start: 20120228, end: 20120228
  44. PREDNISONE TAB [Suspect]
     Dosage: 500 MG, UNK
     Route: 048
     Dates: start: 20120306, end: 20120310
  45. DOXORUBICIN HCL [Suspect]
     Indication: B-CELL LYMPHOMA
     Dosage: 100 MG, UNK
     Route: 042
     Dates: start: 20120221, end: 20120221
  46. VINCRISTINE [Suspect]
     Indication: B-CELL LYMPHOMA
     Dosage: 2 MG, UNK
     Route: 042
     Dates: start: 20120221, end: 20120221
  47. PAMOL [Concomitant]
     Dosage: 1000 MG, UNK
     Route: 048
     Dates: start: 20120221, end: 20120221
  48. SULFAMETHOXAZOLE + TRIMETHOPRIM [Concomitant]
     Dosage: 480 MG, UNK
     Route: 048
     Dates: start: 20120301
  49. ACYCLOVIR [Concomitant]
     Dosage: 800 MG, UNK
     Route: 048
     Dates: start: 20120306, end: 20120306
  50. GABAPENTIN [Concomitant]
     Indication: NEURALGIA
     Dosage: 300 MG, UNK
     Route: 048
     Dates: start: 20120121, end: 20120122
  51. GABAPENTIN [Concomitant]
     Indication: CONSTIPATION
     Dosage: 600 MG, UNK
     Route: 048
     Dates: start: 20120122, end: 20120123
  52. GABAPENTIN [Concomitant]
     Dosage: 600 MG, UNK
     Route: 048
     Dates: start: 20120123, end: 20120206
  53. OXAZEPAM [Concomitant]
     Indication: CONSTIPATION
     Dosage: 600 MG, UNK
     Route: 048
     Dates: start: 20120122, end: 20120123
  54. OXAZEPAM [Concomitant]
     Dosage: 600 MG, UNK
     Route: 048
     Dates: start: 20120123, end: 20120206

REACTIONS (1)
  - WEIGHT DECREASED [None]
